FAERS Safety Report 7973396-1 (Version None)
Quarter: 2011Q4

REPORT INFORMATION
  Report Type: 
  Country: None (occurrence: None)
  Receive Date: 20111213
  Receipt Date: 20111202
  Transmission Date: 20120403
  Serious: Yes (Other)
  Sender: FDA-Public Use
  Company Number: PHHY2011BR106285

PATIENT
  Sex: Female

DRUGS (3)
  1. EXFORGE [Suspect]
     Indication: HYPERTENSION
     Dosage: 1 DF(160/10 MG), QD IN THE MORNING
  2. EXFORGE [Suspect]
     Dosage: 0.5 DF (160/10 MG), QD IN THE MORNING
  3. EXFORGE [Suspect]
     Dosage: 1 DF (160/10 MG), QD IN THE MORNING

REACTIONS (4)
  - WRONG TECHNIQUE IN DRUG USAGE PROCESS [None]
  - NEURITIS [None]
  - MUSCULOSKELETAL CHEST PAIN [None]
  - BLOOD PRESSURE FLUCTUATION [None]
